FAERS Safety Report 16196608 (Version 1)
Quarter: 2019Q2

REPORT INFORMATION
  Report Type: Report from Study
  Country: BR (occurrence: BR)
  Receive Date: 20190415
  Receipt Date: 20190415
  Transmission Date: 20190711
  Serious: Yes (Other)
  Sender: FDA-Public Use
  Company Number: PHHY2019BR009925

PATIENT
  Sex: Female

DRUGS (1)
  1. ACLASTA [Suspect]
     Active Substance: ZOLEDRONIC ACID
     Indication: OSTEOPOROSIS
     Dosage: UNK
     Route: 042
     Dates: start: 20190408

REACTIONS (4)
  - Skin irritation [Unknown]
  - Chest injury [Unknown]
  - Drug hypersensitivity [Unknown]
  - Fear [Unknown]

NARRATIVE: CASE EVENT DATE: 2018
